FAERS Safety Report 8961846 (Version 2)
Quarter: 2012Q4

REPORT INFORMATION
  Report Type: 
  Country: US (occurrence: US)
  Receive Date: 20121212
  Receipt Date: 20121214
  Transmission Date: 20130627
  Serious: Yes (Hospitalization)
  Sender: FDA-Public Use
  Company Number: GXBR2012US002391

PATIENT
  Age: 32 None
  Sex: Male

DRUGS (9)
  1. AMPICILLIN [Suspect]
     Indication: OROPHARYNGEAL PAIN
     Dosage: UNK DF, UNK
  2. PENICILLIN V POTASSIUM [Suspect]
     Dosage: UNK DF, UNK
  3. MAXIPIME [Suspect]
     Dosage: UNK DF, UNK
     Route: 048
  4. ONFI [Suspect]
     Indication: EPILEPSY
     Dosage: 20 mg, BID
     Route: 048
  5. CARBAMAZEPINE [Suspect]
     Dosage: 200 mg, TID
     Route: 048
     Dates: start: 20120504, end: 20120807
  6. CIPROFLOXACIN [Concomitant]
     Indication: PYREXIA
     Dosage: UNK mg, UNK
  7. ALPRAZOLAM [Concomitant]
     Dosage: 1 mg, TID
     Route: 048
     Dates: start: 20120817
  8. CIPROFLOXACIN [Concomitant]
     Dosage: 500 mg, BID
     Route: 048
  9. TEMAZEPAM [Concomitant]
     Dosage: 30 mg, QHS
     Route: 048
     Dates: start: 20120808

REACTIONS (25)
  - Respiratory failure [Recovered/Resolved]
  - Toxic epidermal necrolysis [Recovering/Resolving]
  - Rash maculo-papular [Unknown]
  - Rash erythematous [Unknown]
  - Pain [Unknown]
  - Dyspnoea [Unknown]
  - Swollen tongue [Unknown]
  - Swelling face [Unknown]
  - Oedema [Unknown]
  - Erythema [Unknown]
  - Skin lesion [Unknown]
  - Ocular hyperaemia [Unknown]
  - Cough [Unknown]
  - Oropharyngeal pain [Unknown]
  - Tachycardia [Unknown]
  - Blister [Unknown]
  - Mouth ulceration [Unknown]
  - Dermatitis exfoliative [Unknown]
  - Skin exfoliation [Unknown]
  - Dermatitis bullous [Unknown]
  - Corneal abrasion [Unknown]
  - Pyrexia [Unknown]
  - Stevens-Johnson syndrome [Recovering/Resolving]
  - Pneumonia [Recovered/Resolved]
  - Sleep apnoea syndrome [Unknown]
